FAERS Safety Report 7755094-2 (Version None)
Quarter: 2011Q3

REPORT INFORMATION
  Report Type: 
  Country: None (occurrence: None)
  Receive Date: 20110916
  Receipt Date: 20110912
  Transmission Date: 20111222
  Serious: No
  Sender: FDA-Public Use
  Company Number: US-PFIZER INC-2011175755

PATIENT
  Age: 45 Year
  Sex: Male

DRUGS (6)
  1. TESTOSTERONE [Suspect]
     Indication: BLOOD TESTOSTERONE DECREASED
     Dosage: 2.5 MG, 2 PATCHES DAILY
     Route: 062
     Dates: start: 20110501, end: 20110601
  2. TESTOSTERONE [Suspect]
     Dosage: 5 MG, 1 PATCHES DAILY
     Route: 062
     Dates: start: 20110601
  3. NORCO [Concomitant]
     Dosage: UNK
  4. EFFEXOR [Concomitant]
     Dosage: UNK
  5. PRISTIQ [Suspect]
     Indication: DEPRESSION
     Dosage: 150 MG, DAILY
     Route: 048
     Dates: start: 20110601, end: 20110714
  6. METHADONE [Concomitant]
     Indication: HYPERSENSITIVITY
     Dosage: UNK

REACTIONS (6)
  - ANGER [None]
  - NAUSEA [None]
  - APPLICATION SITE BURN [None]
  - MYALGIA [None]
  - AGGRESSION [None]
  - DRUG INEFFECTIVE [None]
